FAERS Safety Report 8394870-2 (Version None)
Quarter: 2012Q2

REPORT INFORMATION
  Report Type: 
  Country: None (occurrence: None)
  Receive Date: 20120530
  Receipt Date: 20120518
  Transmission Date: 20120825
  Serious: Yes (Other)
  Sender: FDA-Public Use
  Company Number: GR-ELI_LILLY_AND_COMPANY-GR201205007439

PATIENT
  Age: 65 Year
  Sex: Female

DRUGS (2)
  1. TEGRETOL [Concomitant]
     Indication: TRIGEMINAL NEURALGIA
     Dosage: 200 MG, TID
     Route: 048
  2. CYMBALTA [Suspect]
     Indication: TRIGEMINAL NEURALGIA
     Dosage: 30 MG, QD
     Route: 048
     Dates: start: 20120401, end: 20120401

REACTIONS (2)
  - HAEMORRHOIDAL HAEMORRHAGE [None]
  - OFF LABEL USE [None]
